FAERS Safety Report 6057732-1 (Version None)
Quarter: 2009Q1

REPORT INFORMATION
  Report Type: 
  Country: None (occurrence: None)
  Receive Date: 20090129
  Receipt Date: 20090123
  Transmission Date: 20090719
  Serious: Yes (Disabling)
  Sender: FDA-Public Use
  Company Number: JP-ASTRAZENECA-2009AP00765

PATIENT
  Age: 65 Year
  Sex: Female
  Weight: 54 kg

DRUGS (3)
  1. CRESTOR [Suspect]
     Indication: HYPERLIPIDAEMIA
     Route: 048
     Dates: start: 20081215, end: 20081220
  2. BLOPRESS [Concomitant]
     Route: 048
     Dates: start: 20050101
  3. LASIX [Concomitant]
     Route: 048
     Dates: start: 20040101

REACTIONS (2)
  - BACK PAIN [None]
  - MUSCULOSKELETAL STIFFNESS [None]
